FAERS Safety Report 6190277-7 (Version None)
Quarter: 2009Q2

REPORT INFORMATION
  Report Type: 
  Country: None (occurrence: None)
  Receive Date: 20090514
  Receipt Date: 20090512
  Transmission Date: 20091009
  Serious: Yes (Other)
  Sender: FDA-Public Use
  Company Number: AU-BRISTOL-MYERS SQUIBB COMPANY-14620462

PATIENT
  Age: 59 Year
  Sex: Male
  Weight: 118 kg

DRUGS (4)
  1. ETOPOSIDE [Suspect]
     Dates: start: 20070607
  2. CYTARABINE [Suspect]
     Dates: start: 20070607
  3. IDARUBICIN HCL [Suspect]
     Dates: start: 20070607
  4. VANCOMYCIN HCL [Suspect]
     Indication: PYREXIA
     Dosage: INJECTION
     Route: 042
     Dates: start: 20070616, end: 20070621

REACTIONS (3)
  - ENCEPHALOPATHY [None]
  - HEPATITIS [None]
  - TUBULOINTERSTITIAL NEPHRITIS [None]
